FAERS Safety Report 19123970 (Version 2)
Quarter: 2021Q2

REPORT INFORMATION
  Report Type: Report from Study
  Country: US (occurrence: US)
  Receive Date: 20210412
  Receipt Date: 20210421
  Transmission Date: 20210717
  Serious: No
  Sender: FDA-Public Use
  Company Number: US-JNJFOC-20210352636

PATIENT
  Age: 6 Decade
  Sex: Male

DRUGS (2)
  1. TREMFYA [Suspect]
     Active Substance: GUSELKUMAB
     Indication: PSORIASIS
     Route: 058
     Dates: start: 202102
  2. TREMFYA [Suspect]
     Active Substance: GUSELKUMAB

REACTIONS (5)
  - Contusion [Unknown]
  - Device issue [Unknown]
  - Injection site extravasation [Unknown]
  - Erythema [Unknown]
  - Underdose [Unknown]

NARRATIVE: CASE EVENT DATE: 2021
